FAERS Safety Report 7631442-9 (Version None)
Quarter: 2011Q3

REPORT INFORMATION
  Report Type: 
  Country: None (occurrence: None)
  Receive Date: 20110701
  Receipt Date: 20101129
  Transmission Date: 20111222
  Serious: Yes (Hospitalization)
  Sender: FDA-Public Use
  Company Number: 7029827

PATIENT
  Age: 66 Year
  Sex: Male
  Weight: 98 kg

DRUGS (4)
  1. METOPROLOL TARTRATE [Concomitant]
  2. QUINAPRIL HCL [Concomitant]
  3. REBIF [Suspect]
     Indication: MULTIPLE SCLEROSIS
     Dosage: 44 MCG, 3 IN 1 WK, SUBCUTANEOUS
     Route: 058
     Dates: start: 20070918
  4. PRAVASTATIN [Concomitant]

REACTIONS (2)
  - THROMBOSIS [None]
  - PULMONARY EMBOLISM [None]
